FAERS Safety Report 8240976-8 (Version None)
Quarter: 2012Q1

REPORT INFORMATION
  Report Type: 
  Country: None (occurrence: None)
  Receive Date: 20120328
  Receipt Date: 20120314
  Transmission Date: 20120608
  Serious: Yes (Congenital Anomaly, Other)
  Sender: FDA-Public Use
  Company Number: DE-MYLANLABS-2012S1005609

PATIENT
  Age: 0 Year
  Sex: Male
  Weight: 3.6 kg

DRUGS (3)
  1. VIMPAT [Suspect]
     Indication: EPILEPSY
     Dosage: 200 [MG/D (100-0-100) ]/ FOR ONE YEAR
     Route: 064
     Dates: start: 20091111, end: 20100811
  2. TARDYFERON FOLSAURE [Concomitant]
     Indication: PRODUCT USED FOR UNKNOWN INDICATION
     Dosage: 5 [MG/D ]/ ALSO PRECONCEPTIONAL
     Route: 064
  3. LAMOTRGINE [Suspect]
     Indication: EPILEPSY
     Dosage: 700 [MG/D (225-225-250) ]/ FOR TWO YEARS
     Route: 064
     Dates: start: 20091111, end: 20100811

REACTIONS (5)
  - ATRIAL SEPTAL DEFECT [None]
  - COARCTATION OF THE AORTA [None]
  - MATERNAL EXPOSURE DURING PREGNANCY [None]
  - BRADYCARDIA NEONATAL [None]
  - HYPERBILIRUBINAEMIA [None]
